FAERS Safety Report 6615167-4 (Version None)
Quarter: 2010Q1

REPORT INFORMATION
  Report Type: 
  Country: None (occurrence: None)
  Receive Date: 20100305
  Receipt Date: 20100219
  Transmission Date: 20100710
  Serious: Yes (Hospitalization, Other)
  Sender: FDA-Public Use
  Company Number: PHHY2010FR03059

PATIENT
  Sex: Female

DRUGS (13)
  1. ACLASTA [Suspect]
     Indication: OSTEOPOROTIC FRACTURE
     Dosage: UNK
     Route: 042
     Dates: start: 20100106
  2. AROMASIN [Concomitant]
     Indication: BREAST CANCER
     Dosage: UNK
     Dates: start: 20081001
  3. SYMBICORT [Concomitant]
     Indication: ASTHMA
  4. SINGULAIR [Concomitant]
     Indication: ASTHMA
  5. CLARITIN [Concomitant]
     Indication: HYPERSENSITIVITY
  6. KARDEGIC [Concomitant]
     Dosage: 75 MG, UNK
  7. LERCAN [Concomitant]
     Dosage: 10 MG, UNK
  8. IKOREL [Concomitant]
     Dosage: 20 MG, UNK
  9. ODRIK [Concomitant]
     Dosage: 2 MG, UNK
  10. ALDALIX [Concomitant]
     Dosage: 50 MG, UNK
  11. VASTAREL [Concomitant]
     Dosage: 35 MG, UNK
  12. CRESTOR [Concomitant]
     Dosage: 10 MG, UNK
  13. UVEDOSE [Suspect]
     Indication: VITAMIN D
     Dosage: 12 UNK, UNK
     Dates: start: 20100101

REACTIONS (10)
  - ANAEMIA [None]
  - ARTHRALGIA [None]
  - C-REACTIVE PROTEIN INCREASED [None]
  - JOINT SWELLING [None]
  - LYMPHADENOPATHY [None]
  - MIDDLE INSOMNIA [None]
  - OEDEMA PERIPHERAL [None]
  - PAIN IN EXTREMITY [None]
  - PROTEINURIA [None]
  - SYNOVIAL FLUID CRYSTAL [None]
